FAERS Safety Report 5711842-4 (Version None)
Quarter: 2008Q2

REPORT INFORMATION
  Report Type: 
  Country: None (occurrence: None)
  Receive Date: 20080421
  Receipt Date: 20080410
  Transmission Date: 20081010
  Serious: Yes (Other)
  Sender: FDA-Public Use
  Company Number: CA-PFIZER INC-2008032061

PATIENT
  Sex: Female

DRUGS (1)
  1. AROMASIN [Suspect]
     Indication: BREAST CANCER
     Route: 048
     Dates: start: 20070901, end: 20080410

REACTIONS (3)
  - PHLEBITIS [None]
  - TRIGGER FINGER [None]
  - VEIN PAIN [None]
